FAERS Safety Report 6287261-1 (Version None)
Quarter: 2009Q3

REPORT INFORMATION
  Report Type: 
  Country: None (occurrence: None)
  Receive Date: 20090728
  Receipt Date: 20090717
  Transmission Date: 20100115
  Serious: Yes (Other)
  Sender: FDA-Public Use
  Company Number: PHHY2009KR29802

PATIENT
  Sex: Female

DRUGS (1)
  1. EXJADE [Suspect]
     Indication: IRON OVERLOAD
     Dosage: 750 MG/DAY
     Route: 048
     Dates: start: 20090225, end: 20090715

REACTIONS (4)
  - DECREASED APPETITE [None]
  - DIARRHOEA [None]
  - GRAFT VERSUS HOST DISEASE [None]
  - VOMITING [None]
